FAERS Safety Report 15831641 (Version 4)
Quarter: 2020Q4

REPORT INFORMATION
  Report Type: Spontaneous
  Country: US (occurrence: US)
  Receive Date: 20190116
  Receipt Date: 20201218
  Transmission Date: 20210113
  Serious: Yes (Hospitalization, Other)
  Sender: FDA-Public Use
  Company Number: US-EMD SERONO-232088J08USA

PATIENT
  Age: 49 Year
  Sex: Female

DRUGS (7)
  1. PROVIGIL [Concomitant]
     Active Substance: MODAFINIL
     Indication: PRODUCT USED FOR UNKNOWN INDICATION
  2. ZIAC                               /00821801/ [Concomitant]
     Active Substance: CEFIXIME
     Indication: HYPERTENSION
     Dates: start: 2000
  3. PREVACID [Concomitant]
     Active Substance: LANSOPRAZOLE
     Indication: GASTROOESOPHAGEAL REFLUX DISEASE
  4. ZANAFLEX [Concomitant]
     Active Substance: TIZANIDINE HYDROCHLORIDE
     Indication: MULTIPLE SCLEROSIS
     Dates: start: 2002
  5. REBIF [Suspect]
     Active Substance: INTERFERON BETA-1A
     Indication: RELAPSING-REMITTING MULTIPLE SCLEROSIS
     Dosage: REBIF PREFILLED SYRINGE
     Route: 058
     Dates: start: 20020830
  6. NEURONTIN [Concomitant]
     Active Substance: GABAPENTIN
     Indication: MULTIPLE SCLEROSIS
     Dates: start: 2002
  7. MOTRIN [Concomitant]
     Active Substance: IBUPROFEN
     Indication: PREMEDICATION

REACTIONS (17)
  - Steroid withdrawal syndrome [Unknown]
  - Malaise [Unknown]
  - Impaired driving ability [Not Recovered/Not Resolved]
  - Ankle fracture [Recovering/Resolving]
  - Pain [Unknown]
  - Gait disturbance [Unknown]
  - Musculoskeletal stiffness [Unknown]
  - Peripheral swelling [Unknown]
  - Cholelithiasis [Recovered/Resolved]
  - Fall [Not Recovered/Not Resolved]
  - Injection site erythema [Recovering/Resolving]
  - Fatigue [Unknown]
  - Injection site discolouration [Unknown]
  - Injection site injury [Unknown]
  - Arthralgia [Unknown]
  - Limb discomfort [Unknown]
  - Head injury [Unknown]

NARRATIVE: CASE EVENT DATE: 200709
